FAERS Safety Report 10518596 (Version 3)
Quarter: 2014Q4

REPORT INFORMATION
  Report Type: Report from Study
  Country: US (occurrence: US)
  Receive Date: 20141015
  Receipt Date: 20141015
  Transmission Date: 20150528
  Serious: Yes (Other)
  Sender: FDA-Public Use
  Company Number: US-LEO PHARMA-223388

PATIENT
  Age: 52 Year
  Sex: Female

DRUGS (1)
  1. PICATO [Suspect]
     Active Substance: INGENOL MEBUTATE
     Indication: ACTINIC KERATOSIS
     Route: 061
     Dates: start: 20130829, end: 20130830

REACTIONS (7)
  - Application site swelling [Recovered/Resolved]
  - Incorrect dose administered [Recovered/Resolved]
  - Chemical burn of skin [Recovering/Resolving]
  - Application site erythema [Recovering/Resolving]
  - Application site exfoliation [Recovering/Resolving]
  - Drug administration error [Recovering/Resolving]
  - Application site pain [Recovering/Resolving]

NARRATIVE: CASE EVENT DATE: 20130829
